FAERS Safety Report 4742091-4 (Version None)
Quarter: 2005Q3

REPORT INFORMATION
  Report Type: 
  Country: None (occurrence: None)
  Receive Date: 20050808
  Receipt Date: 20050721
  Transmission Date: 20060218
  Serious: Yes (Other)
  Sender: FDA-Public Use
  Company Number: 2005-01565

PATIENT
  Age: 59 Year
  Sex: Male

DRUGS (2)
  1. VELCADE [Suspect]
     Indication: MULTIPLE MYELOMA
     Dosage: 2.20 MG, INTRAVENOUS
     Route: 042
     Dates: start: 20050418
  2. PAMIDRONATE DISODIUM (PAMIDRONATE DISODIUM) INFUSION [Concomitant]

REACTIONS (2)
  - BLISTER [None]
  - PHOTOSENSITIVITY REACTION [None]
